FAERS Safety Report 13830384 (Version 1)
Quarter: 2017Q3

REPORT INFORMATION
  Report Type: Spontaneous
  Country: US (occurrence: US)
  Receive Date: 20170803
  Receipt Date: 20170803
  Transmission Date: 20171127
  Serious: No
  Sender: FDA-Public Use
  Company Number: US-SA-2017SA081168

PATIENT
  Age: 79 Year
  Sex: Female

DRUGS (23)
  1. ASPIRIN. [Concomitant]
     Active Substance: ASPIRIN
     Dates: start: 20070907
  2. PROAIR HFA [Concomitant]
     Active Substance: ALBUTEROL SULFATE
     Dates: start: 20150824
  3. VITAMIN C [Concomitant]
     Active Substance: ASCORBIC ACID
     Dates: start: 20080917
  4. CALCIUM CARBONATE. [Concomitant]
     Active Substance: CALCIUM CARBONATE
  5. SALINE [Concomitant]
     Active Substance: SODIUM CHLORIDE
  6. REPATHA [Concomitant]
     Active Substance: EVOLOCUMAB
     Dates: start: 20161214
  7. IMDUR [Concomitant]
     Active Substance: ISOSORBIDE MONONITRATE
  8. MAGNESIUM [Concomitant]
     Active Substance: MAGNESIUM
  9. ATENOLOL. [Concomitant]
     Active Substance: ATENOLOL
  10. TENORMIN [Concomitant]
     Active Substance: ATENOLOL
     Dates: start: 20151218
  11. ZYRTEC [Concomitant]
     Active Substance: CETIRIZINE HYDROCHLORIDE
  12. LOTENSIN [Concomitant]
     Active Substance: BENAZEPRIL HYDROCHLORIDE
  13. PRALUENT [Suspect]
     Active Substance: ALIROCUMAB
     Route: 058
  14. ALIROCUMAB PREFILLED PEN [Concomitant]
     Active Substance: ALIROCUMAB
  15. LOTENSIN [Concomitant]
     Active Substance: BENAZEPRIL HYDROCHLORIDE
     Dates: start: 20151218
  16. CLEOCIN [Concomitant]
     Active Substance: CLINDAMYCIN PHOSPHATE
  17. VITAMIN D [Concomitant]
     Active Substance: CHOLECALCIFEROL
  18. FOLIC ACID. [Concomitant]
     Active Substance: FOLIC ACID
  19. FOLVITE [Concomitant]
     Active Substance: FOLIC ACID
  20. VITAMIN D3 [Concomitant]
     Active Substance: CHOLECALCIFEROL
  21. REPATHA [Concomitant]
     Active Substance: EVOLOCUMAB
     Dates: start: 20160329
  22. FOLVITE [Concomitant]
     Active Substance: FOLIC ACID
  23. EZETIMIBE. [Concomitant]
     Active Substance: EZETIMIBE

REACTIONS (1)
  - Injection site reaction [Unknown]
